FAERS Safety Report 13797387 (Version 1)
Quarter: 2017Q3

REPORT INFORMATION
  Report Type: Spontaneous
  Country: NL (occurrence: NL)
  Receive Date: 20170727
  Receipt Date: 20170727
  Transmission Date: 20171127
  Serious: Yes (Other)
  Sender: FDA-Public Use
  Company Number: NL-009507513-1707NLD010654

PATIENT
  Sex: Female

DRUGS (3)
  1. AERIUS [Suspect]
     Active Substance: DESLORATADINE
  2. AERIUS [Suspect]
     Active Substance: DESLORATADINE
     Route: 048
  3. DESLORATADINE. [Suspect]
     Active Substance: DESLORATADINE

REACTIONS (5)
  - Fatigue [Unknown]
  - Headache [Unknown]
  - Sudden onset of sleep [Unknown]
  - Nausea [Unknown]
  - Myalgia [Unknown]
